FAERS Safety Report 4851820-0 (Version None)
Quarter: 2005Q4

REPORT INFORMATION
  Report Type: 
  Country: None (occurrence: None)
  Receive Date: 20051213
  Receipt Date: 20051128
  Transmission Date: 20060501
  Serious: Yes (Death, Hospitalization)
  Sender: FDA-Public Use
  Company Number: ES-AMGEN-UK157412

PATIENT
  Sex: Female

DRUGS (13)
  1. NEUPOGEN [Suspect]
     Indication: CHEMOTHERAPY
     Route: 065
     Dates: start: 20050413, end: 20050501
  2. ZOFRAN [Concomitant]
     Route: 042
     Dates: start: 20050413
  3. TARGOCID [Concomitant]
     Route: 042
     Dates: start: 20050416, end: 20050428
  4. POLARAMINE [Concomitant]
     Route: 042
     Dates: start: 20050426, end: 20050501
  5. URBASON [Concomitant]
     Route: 042
     Dates: start: 20050426, end: 20050501
  6. NOLOTIL /SPA/ [Concomitant]
     Route: 042
     Dates: start: 20050426, end: 20050501
  7. CASPOFUNGIN [Concomitant]
     Route: 042
     Dates: start: 20050421, end: 20050501
  8. AMPHOTERICIN B [Concomitant]
     Route: 042
     Dates: start: 20050426, end: 20050501
  9. FRUSEMIDE [Concomitant]
     Route: 042
     Dates: start: 20050428, end: 20050501
  10. LORAZEPAM [Concomitant]
     Route: 048
     Dates: start: 20050420, end: 20050511
  11. DAUNORUBICIN [Concomitant]
     Route: 065
  12. CYTARABINE [Concomitant]
     Route: 065
  13. ETOPOSIDE [Concomitant]
     Route: 065

REACTIONS (6)
  - ASCITES [None]
  - DYSPNOEA [None]
  - FLUID IMBALANCE [None]
  - FUNGAL INFECTION [None]
  - OEDEMA PERIPHERAL [None]
  - PYREXIA [None]
